FAERS Safety Report 6640842-5 (Version None)
Quarter: 2010Q1

REPORT INFORMATION
  Report Type: 
  Country: None (occurrence: None)
  Receive Date: 20100318
  Receipt Date: 20100309
  Transmission Date: 20100710
  Serious: Yes (Death, Other)
  Sender: FDA-Public Use
  Company Number: US-PFIZER INC-2010030578

PATIENT
  Age: 45 Year
  Sex: Female

DRUGS (3)
  1. XANAX [Suspect]
  2. OXYCONTIN [Suspect]
  3. ALCOHOL [Suspect]

REACTIONS (2)
  - DEATH [None]
  - INTENTIONAL DRUG MISUSE [None]
